FAERS Safety Report 10761246 (Version 1)
Quarter: 2015Q1

REPORT INFORMATION
  Report Type: Spontaneous
  Country: US (occurrence: None)
  Receive Date: 20150203
  Receipt Date: 20150203
  Transmission Date: 20150721
  Serious: Yes (Disabling)
  Sender: FDA-Public Use
  Company Number: None

PATIENT
  Age: 67 Year
  Sex: Male
  Weight: 81.65 kg

DRUGS (1)
  1. CIPROFLOXACIN. [Suspect]
     Active Substance: CIPROFLOXACIN
     Indication: LUNG INFECTION PSEUDOMONAL
     Route: 048
     Dates: start: 20140530, end: 20140711

REACTIONS (5)
  - Paraesthesia [None]
  - Hypoaesthesia [None]
  - Seizure [None]
  - Myalgia [None]
  - Angina pectoris [None]

NARRATIVE: CASE EVENT DATE: 20140712
